FAERS Safety Report 17615163 (Version 2)
Quarter: 2020Q2

REPORT INFORMATION
  Report Type: Spontaneous
  Country: US (occurrence: US)
  Receive Date: 20200402
  Receipt Date: 20200403
  Transmission Date: 20200713
  Serious: No
  Sender: FDA-Public Use
  Company Number: US-PFIZER INC-2020135465

PATIENT
  Age: 61 Year
  Sex: Female
  Weight: 54.43 kg

DRUGS (3)
  1. ESTRING [Suspect]
     Active Substance: ESTRADIOL
     Indication: VULVOVAGINAL DRYNESS
     Dosage: UNK (1 RING INSERTED VAGINALLY FOR 90 DAYS)
     Route: 067
     Dates: start: 201910
  2. ESTRING [Suspect]
     Active Substance: ESTRADIOL
     Dosage: UNK (1 RING INSERTED VAGINALLY FOR 90 DAYS)
     Route: 067
     Dates: start: 20200104
  3. CLIMARA [Concomitant]
     Active Substance: ESTRADIOL
     Dosage: 0.037 UG, WEEKLY (0.0375MCG, ONE PATCH, CHANGED WEEKLY)

REACTIONS (3)
  - Thyroid hormones decreased [Recovered/Resolved]
  - Vulvovaginal discomfort [Unknown]
  - Drug ineffective [Unknown]

NARRATIVE: CASE EVENT DATE: 20200310
